FAERS Safety Report 5584115-0 (Version None)
Quarter: 2008Q1

REPORT INFORMATION
  Report Type: 
  Country: None (occurrence: None)
  Receive Date: 20080108
  Receipt Date: 20080104
  Transmission Date: 20080703
  Serious: Yes (Death, Other)
  Sender: FDA-Public Use
  Company Number: US-AVENTIS-200810083US

PATIENT
  Sex: Female
  Weight: 65 kg

DRUGS (1)
  1. LOVENOX [Suspect]
     Route: 051
     Dates: end: 20071201

REACTIONS (2)
  - DEATH [None]
  - HAEMORRHAGE INTRACRANIAL [None]
